FAERS Safety Report 6239475-4 (Version None)
Quarter: 2009Q2

REPORT INFORMATION
  Report Type: 
  Country: None (occurrence: None)
  Receive Date: 20090622
  Receipt Date: 20090610
  Transmission Date: 20091009
  Serious: Yes (Other)
  Sender: FDA-Public Use
  Company Number: US-SANOFI-SYNTHELABO-A03200902635

PATIENT
  Age: 17 Year
  Sex: Female

DRUGS (3)
  1. IRINOTECAN HCL [Suspect]
     Indication: RHABDOMYOSARCOMA
     Route: 042
  2. VINORELBINE [Suspect]
     Indication: RHABDOMYOSARCOMA
     Route: 042
  3. ELOXATIN [Suspect]
     Indication: RHABDOMYOSARCOMA
     Route: 042

REACTIONS (2)
  - DISEASE PROGRESSION [None]
  - PLACENTAL DISORDER [None]
